FAERS Safety Report 4799766-0 (Version None)
Quarter: 2005Q4

REPORT INFORMATION
  Report Type: 
  Country: None (occurrence: None)
  Receive Date: 20051012
  Receipt Date: 20051012
  Transmission Date: 20060501
  Serious: Yes (Hospitalization)
  Sender: FDA-Public Use
  Company Number: None

PATIENT
  Sex: Female
  Weight: 66.2252 kg

DRUGS (2)
  1. CARBOPLATIN [Suspect]
     Indication: LUNG NEOPLASM MALIGNANT
     Dosage: (THERAPY DATES: PRIOR TO ADMISSION)
  2. ETOPOSIDE [Suspect]
     Dosage: (THERAPY DATES: PRIOR TO ADMISSION)

REACTIONS (5)
  - ASTHENIA [None]
  - DEHYDRATION [None]
  - DIZZINESS [None]
  - NAUSEA [None]
  - ORAL INTAKE REDUCED [None]
